FAERS Safety Report 18548343 (Version 1)
Quarter: 2020Q4

REPORT INFORMATION
  Report Type: Spontaneous
  Country: AR (occurrence: AR)
  Receive Date: 20201126
  Receipt Date: 20201126
  Transmission Date: 20210114
  Serious: Yes (Other)
  Sender: FDA-Public Use
  Company Number: AR-AMGEN-ARGSP2020191163

PATIENT
  Age: 29 Year
  Sex: Male

DRUGS (3)
  1. ENBREL [Suspect]
     Active Substance: ETANERCEPT
     Dosage: 25 MG, STRETCHING IT TO ALMOST EVERY 10 DAYS, FROM 8 TO 10 DAYS
     Route: 065
     Dates: end: 202011
  2. ENBREL [Suspect]
     Active Substance: ETANERCEPT
     Indication: PSORIASIS
     Dosage: UNK
     Route: 065
     Dates: start: 20170317, end: 2019
  3. ENBREL [Suspect]
     Active Substance: ETANERCEPT
     Dosage: 25 MG, EVERY 8 DAYS
     Route: 065
     Dates: start: 2019

REACTIONS (8)
  - Off label use [Not Recovered/Not Resolved]
  - Fall [Not Recovered/Not Resolved]
  - Intentional product misuse [Not Recovered/Not Resolved]
  - Illness [Not Recovered/Not Resolved]
  - Condition aggravated [Not Recovered/Not Resolved]
  - Upper limb fracture [Not Recovered/Not Resolved]
  - Hand fracture [Not Recovered/Not Resolved]
  - Pain [Not Recovered/Not Resolved]

NARRATIVE: CASE EVENT DATE: 2019
